FAERS Safety Report 25183444 (Version 1)
Quarter: 2025Q2

REPORT INFORMATION
  Report Type: Spontaneous
  Country: US (occurrence: US)
  Receive Date: 20250410
  Receipt Date: 20250410
  Transmission Date: 20250716
  Serious: Yes (Other)
  Sender: ORGANON
  Company Number: US-ORGANON-O2504USA000341

PATIENT
  Age: 19 Year
  Sex: Female

DRUGS (2)
  1. NEXPLANON [Suspect]
     Active Substance: ETONOGESTREL
     Route: 059
  2. NEXPLANON [Suspect]
     Active Substance: ETONOGESTREL

REACTIONS (5)
  - Heavy menstrual bleeding [Recovered/Resolved]
  - Heavy menstrual bleeding [Not Recovered/Not Resolved]
  - Uterine disorder [Not Recovered/Not Resolved]
  - Amenorrhoea [Recovered/Resolved]
  - Product use issue [Unknown]

NARRATIVE: CASE EVENT DATE: 20250201
